FAERS Safety Report 9156656 (Version 2)
Quarter: 2013Q1

REPORT INFORMATION
  Report Type: Spontaneous
  Country: US (occurrence: None)
  Receive Date: 20130211
  Receipt Date: 20130221
  Transmission Date: 20140127
  Serious: Yes (Hospitalization)
  Sender: FDA-Public Use
  Company Number: 2013SUN00059

PATIENT
  Age: 67 Year
  Sex: Female
  Weight: 73 kg

DRUGS (7)
  1. METFORMIN [Suspect]
     Indication: TYPE 2 DIABETES MELLITUS
     Route: 048
     Dates: start: 20100202
  2. GLIPIZIDE [Suspect]
     Indication: TYPE 2 DIABETES MELLITUS
     Route: 048
     Dates: start: 20100302, end: 20110712
  3. ATORVASTATIN CALCIUM (ATORVASTATIN CALCIUM) [Suspect]
     Route: 048
     Dates: start: 20030306
  4. ASPIRIN (ACETYL SALICYCLIC ACID) [Concomitant]
  5. METFORMIN (METFORMIN) [Concomitant]
  6. LISINOPRIL (LISINOPRIL) [Concomitant]
  7. LATANOPROST (LATANOPROST) (NONE) [Concomitant]

REACTIONS (20)
  - Polymyositis [None]
  - Alanine aminotransferase increased [None]
  - Aspartate aminotransferase increased [None]
  - Abdominal pain [None]
  - Dysphagia [None]
  - Haemoptysis [None]
  - Antinuclear antibody positive [None]
  - Fatigue [None]
  - Neoplasm malignant [None]
  - Weight decreased [None]
  - Rhabdomyolysis [None]
  - Blood glucose increased [None]
  - Dyspnoea exertional [None]
  - Scleroderma [None]
  - Connective tissue disorder [None]
  - Sarcoidosis [None]
  - Lymphoma [None]
  - Cerebral calcification [None]
  - Renal cyst [None]
  - Oesophageal hypomotility [None]
